FAERS Safety Report 9234811 (Version 5)
Quarter: 2013Q3

REPORT INFORMATION
  Report Type: Spontaneous
  Country: GB (occurrence: GB)
  Receive Date: 20130416
  Receipt Date: 20130719
  Transmission Date: 20140515
  Serious: Yes (Other)
  Sender: FDA-Public Use
  Company Number: GB-LUNDBECK-DKLU1090257

PATIENT
  Age: 48 Year
  Sex: Male

DRUGS (3)
  1. ONFI [Suspect]
     Indication: EPILEPSY
     Route: 048
     Dates: start: 2010
  2. TEGRETOL [Concomitant]
     Indication: PRODUCT USED FOR UNKNOWN INDICATION
  3. TEMAZEPAM [Concomitant]
     Indication: PRODUCT USED FOR UNKNOWN INDICATION

REACTIONS (8)
  - Loss of consciousness [Recovered/Resolved]
  - Arthralgia [Recovered/Resolved with Sequelae]
  - Product substitution issue [None]
  - Product counterfeit [None]
  - Myalgia [None]
  - Pain in extremity [None]
  - Back pain [None]
  - Product quality issue [None]
